FAERS Safety Report 4587263-7 (Version None)
Quarter: 2005Q1

REPORT INFORMATION
  Report Type: 
  Country: None (occurrence: None)
  Receive Date: 20050218
  Receipt Date: 20050208
  Transmission Date: 20050727
  Serious: Yes (Death)
  Sender: FDA-Public Use
  Company Number: NL-GLAXOSMITHKLINE-B0372036A

PATIENT
  Sex: Male

DRUGS (2)
  1. PAROXETINE HYDROCHLORIDE [Suspect]
     Indication: DEPRESSION
     Dosage: 30MG UNKNOWN
  2. LORAMET [Concomitant]
     Dosage: 2MG UNKNOWN

REACTIONS (9)
  - ANOMALY OF EXTERNAL EAR CONGENITAL [None]
  - CATARACT [None]
  - CHONDRODYSTROPHY [None]
  - CONGENITAL MUSCULOSKELETAL ANOMALY [None]
  - CYANOSIS [None]
  - DRUG EXPOSURE DURING PREGNANCY [None]
  - FACIAL DYSMORPHISM [None]
  - NECK DEFORMITY [None]
  - RESPIRATORY ARREST [None]
